FAERS Safety Report 6390238-9 (Version None)
Quarter: 2009Q4

REPORT INFORMATION
  Report Type: 
  Country: None (occurrence: None)
  Receive Date: 20091005
  Receipt Date: 20091005
  Transmission Date: 20100525
  Serious: Yes (Hospitalization)
  Sender: FDA-Public Use
  Company Number: None

PATIENT
  Age: 77 Year
  Sex: Male

DRUGS (2)
  1. CLINDAMYCIN [Suspect]
     Indication: STAPHYLOCOCCAL SKIN INFECTION
     Dosage: 300 MG TID PO
     Route: 048
     Dates: start: 20090628, end: 20090712
  2. CEPHALEXIN [Suspect]
     Indication: STAPHYLOCOCCAL SKIN INFECTION
     Dosage: 500 MG BID PO
     Route: 048
     Dates: start: 20090701, end: 20090724

REACTIONS (6)
  - CLOSTRIDIUM DIFFICILE COLITIS [None]
  - MENTAL STATUS CHANGES [None]
  - METABOLIC ACIDOSIS [None]
  - MULTI-ORGAN FAILURE [None]
  - PNEUMONIA [None]
  - RENAL FAILURE [None]
